FAERS Safety Report 8491675-9 (Version None)
Quarter: 2012Q3

REPORT INFORMATION
  Report Type: 
  Country: None (occurrence: None)
  Receive Date: 20120706
  Receipt Date: 20120628
  Transmission Date: 20120928
  Serious: Yes (Hospitalization)
  Sender: FDA-Public Use
  Company Number: AU-BRISTOL-MYERS SQUIBB COMPANY-16722175

PATIENT
  Age: 87 Year
  Sex: Female
  Weight: 89 kg

DRUGS (12)
  1. ORENCIA [Suspect]
     Indication: RHEUMATOID ARTHRITIS
     Dosage: INTER ON 8JUN12 NO OF DOSES 4 LAST DOSE ON 7JUN12
     Route: 042
     Dates: start: 20120413
  2. ZOLPIDEM TARTRATE [Concomitant]
  3. SERTRALINE HYDROCHLORIDE [Concomitant]
  4. SIMVASTATIN [Concomitant]
  5. FUROSEMIDE [Concomitant]
  6. WARFARIN SODIUM [Concomitant]
  7. VITAMIN D [Concomitant]
  8. ALDACTONE [Concomitant]
  9. LEVOTHYROXINE SODIUM [Concomitant]
  10. ALLOPURINOL [Concomitant]
  11. CALCIUM CARBONATE [Concomitant]
  12. DIGOXIN [Concomitant]

REACTIONS (3)
  - TACHYCARDIA [None]
  - LOWER RESPIRATORY TRACT INFECTION [None]
  - OEDEMA PERIPHERAL [None]
